FAERS Safety Report 7174184-9 (Version None)
Quarter: 2010Q4

REPORT INFORMATION
  Report Type: 
  Country: None (occurrence: None)
  Receive Date: 20101202
  Receipt Date: 20101123
  Transmission Date: 20110411
  Serious: Yes (Hospitalization)
  Sender: FDA-Public Use
  Company Number: WAES 1010CHN00014

PATIENT
  Age: 61 Year
  Sex: Male

DRUGS (5)
  1. SIMVASTATIN [Suspect]
     Indication: HYPERCHOLESTEROLAEMIA
     Dosage: 40 MG/DAILY, PO
     Route: 048
     Dates: start: 20071207, end: 20100715
  2. PLACEBO [Suspect]
     Indication: HIGH DENSITY LIPOPROTEIN DECREASED
     Dosage: PO
     Route: 048
     Dates: start: 20080229, end: 20100215
  3. TAB LAROPIPRANT (+) NIACIN [Suspect]
     Indication: HIGH DENSITY LIPOPROTEIN DECREASED
     Dosage: 20MG-1 GM/DAILY, PO
     Route: 048
     Dates: start: 20080104
  4. ASPIRIN [Concomitant]
  5. LORATADINE [Concomitant]

REACTIONS (14)
  - ALANINE AMINOTRANSFERASE INCREASED [None]
  - ANTINUCLEAR ANTIBODY POSITIVE [None]
  - ASPARTATE AMINOTRANSFERASE INCREASED [None]
  - BLOOD ALKALINE PHOSPHATASE [None]
  - BLOOD BILIRUBIN INCREASED [None]
  - CHOLELITHIASIS [None]
  - DIARRHOEA [None]
  - EPSTEIN-BARR VIRUS ANTIBODY POSITIVE [None]
  - EPSTEIN-BARR VIRUS ANTIGEN POSITIVE [None]
  - GAMMA-GLUTAMYLTRANSFERASE INCREASED [None]
  - HENOCH-SCHONLEIN PURPURA [None]
  - PROTHROMBIN TIME PROLONGED [None]
  - URINE IRON INCREASED [None]
  - URTICARIA [None]
